FAERS Safety Report 20891766 (Version 1)
Quarter: 2022Q2

REPORT INFORMATION
  Report Type: Spontaneous
  Country: CO (occurrence: CO)
  Receive Date: 20220530
  Receipt Date: 20220530
  Transmission Date: 20220721
  Serious: Yes (Death, Other)
  Sender: FDA-Public Use
  Company Number: CO-AMGEN-COLSP2022091647

PATIENT
  Age: 62 Year
  Sex: Male
  Weight: 63 kg

DRUGS (5)
  1. MVASI [Suspect]
     Active Substance: BEVACIZUMAB-AWWB
     Indication: Colon cancer
     Dosage: 487 MILLIGRAM
     Route: 042
     Dates: start: 20220314, end: 20220425
  2. FLUOROURACIL [Concomitant]
     Active Substance: FLUOROURACIL
     Indication: Colon cancer
     Dosage: 700 MILLIGRAM
     Route: 042
     Dates: start: 20220314, end: 20220425
  3. FLUOROURACIL [Concomitant]
     Active Substance: FLUOROURACIL
     Dosage: 4200 MG IV INF OF 46 H DAY I AND 15
     Route: 042
  4. LEUCOVORIN CALCIUM [Concomitant]
     Active Substance: LEUCOVORIN CALCIUM
     Indication: Colon cancer
     Dosage: 700 MILLIGRAM
     Route: 042
     Dates: start: 20220314, end: 20220425
  5. OXALIPLATIN [Concomitant]
     Active Substance: OXALIPLATIN
     Indication: Colon cancer
     Dosage: 149 MILLIGRAM
     Route: 042
     Dates: start: 20220314, end: 20220425

REACTIONS (10)
  - Death [Fatal]
  - Bradycardia [Unknown]
  - Metastases to central nervous system [Unknown]
  - Brain oedema [Unknown]
  - Decerebrate posture [Unknown]
  - Respiratory failure [Unknown]
  - Disorientation [Unknown]
  - Vomiting [Unknown]
  - Salivary hypersecretion [Unknown]
  - Neurovascular conflict [Unknown]

NARRATIVE: CASE EVENT DATE: 20220427
